FAERS Safety Report 8110650-7 (Version None)
Quarter: 2012Q1

REPORT INFORMATION
  Report Type: 
  Country: None (occurrence: None)
  Receive Date: 20120203
  Receipt Date: 20120121
  Transmission Date: 20120608
  Serious: Yes (Other)
  Sender: FDA-Public Use
  Company Number: US-PAR PHARMACEUTICAL, INC-2012SCPR003939

PATIENT

DRUGS (1)
  1. TESTOSTERONE [Suspect]
     Indication: PRODUCT USED FOR UNKNOWN INDICATION
     Dosage: 50 MG, / DAY
     Route: 065

REACTIONS (1)
  - AMAUROSIS FUGAX [None]
